FAERS Safety Report 7160112-9 (Version None)
Quarter: 2010Q4

REPORT INFORMATION
  Report Type: 
  Country: None (occurrence: None)
  Receive Date: 20101214
  Receipt Date: 20091123
  Transmission Date: 20110411
  Serious: No
  Sender: FDA-Public Use
  Company Number: US-AMGEN-QUU376374

PATIENT

DRUGS (2)
  1. ENBREL [Suspect]
     Indication: RHEUMATOID ARTHRITIS
     Dosage: 50 MG, QWK
     Route: 058
     Dates: start: 20091024
  2. HYDROXYCHLOROQUINE [Concomitant]
     Dosage: UNK UNK, UNK

REACTIONS (9)
  - ABDOMINAL PAIN UPPER [None]
  - DYSPNOEA [None]
  - HEART RATE IRREGULAR [None]
  - HEPATITIS B [None]
  - INJECTION SITE MASS [None]
  - INSOMNIA [None]
  - JOINT SWELLING [None]
  - MOOD SWINGS [None]
  - PERSONALITY CHANGE [None]
